FAERS Safety Report 7415640-5 (Version None)
Quarter: 2011Q2

REPORT INFORMATION
  Report Type: 
  Country: None (occurrence: None)
  Receive Date: 20110406
  Receipt Date: 20110329
  Transmission Date: 20111010
  Serious: Yes (Other)
  Sender: FDA-Public Use
  Company Number: 20109697

PATIENT
  Sex: Male

DRUGS (1)
  1. LIORESAL [Suspect]
     Indication: MUSCLE SPASTICITY
     Dosage: 675 MCG, DAILY, INTRATHECAL
     Route: 037

REACTIONS (5)
  - URINARY TRACT INFECTION [None]
  - DRUG WITHDRAWAL SYNDROME [None]
  - AGITATION [None]
  - MUSCLE SPASTICITY [None]
  - HYPERTHERMIA [None]
